FAERS Safety Report 7767474-X (Version None)
Quarter: 2011Q3

REPORT INFORMATION
  Report Type: 
  Country: None (occurrence: None)
  Receive Date: 20110922
  Receipt Date: 20110909
  Transmission Date: 20111222
  Serious: Yes (Other)
  Sender: FDA-Public Use
  Company Number: US-BAYER-2011-052608

PATIENT
  Age: 27 Year
  Sex: Female
  Weight: 84 kg

DRUGS (3)
  1. NEXIUM [Concomitant]
  2. ATENOLOL [Concomitant]
     Route: 048
  3. YASMIN [Suspect]
     Indication: CONTRACEPTION
     Dosage: UNK
     Dates: start: 20030501, end: 20070601

REACTIONS (5)
  - EMOTIONAL DISTRESS [None]
  - CHOLECYSTITIS CHRONIC [None]
  - INJURY [None]
  - CHOLECYSTECTOMY [None]
  - CHOLELITHIASIS [None]
